FAERS Safety Report 17127403 (Version 3)
Quarter: 2019Q4

REPORT INFORMATION
  Report Type: Spontaneous
  Country: FI (occurrence: FI)
  Receive Date: 20191209
  Receipt Date: 20191230
  Transmission Date: 20200122
  Serious: Yes (Other)
  Sender: FDA-Public Use
  Company Number: FI-ABBVIE-19P-055-3185194-00

PATIENT
  Age: 74 Year
  Sex: Male

DRUGS (1)
  1. ENANTONE MONATS-DEPOT [Suspect]
     Active Substance: LEUPROLIDE ACETATE
     Indication: PROSTATE CANCER
     Route: 065

REACTIONS (3)
  - Metastasis [Unknown]
  - Prostatic specific antigen increased [Unknown]
  - Injection site induration [Unknown]

NARRATIVE: CASE EVENT DATE: 20191119
